FAERS Safety Report 5215354-6 (Version None)
Quarter: 2006Q4

REPORT INFORMATION
  Report Type: 
  Country: None (occurrence: None)
  Receive Date: 20061122
  Receipt Date: 20060618
  Transmission Date: 20070319
  Serious: Yes (Other)
  Sender: FDA-Public Use
  Company Number: 2006076965

PATIENT
  Age: 63 Year

DRUGS (5)
  1. LIPITOR [Suspect]
     Indication: DRUG USE FOR UNKNOWN INDICATION
     Dosage: 20 MG (1 IN 1 D)
  2. LEVOXYL [Concomitant]
  3. FLEXERIL [Concomitant]
  4. ALL OTHER THERAPEUTIC PRODUCTS (ALL OTHER THERAPEUTIC PRODUCTS) [Concomitant]
  5. ANTIINFLAMMATORY/ANTIRHEUMATIC PRODUCTS (ANTIINFLAMMATORY/ANTIRHEUMATI [Concomitant]

REACTIONS (1)
  - AMNESIA [None]
